FAERS Safety Report 21224441 (Version 2)
Quarter: 2022Q3

REPORT INFORMATION
  Report Type: Spontaneous
  Country: CA (occurrence: CA)
  Receive Date: 20220817
  Receipt Date: 20220901
  Transmission Date: 20221027
  Serious: Yes (Other)
  Sender: FDA-Public Use
  Company Number: None

PATIENT
  Sex: Female

DRUGS (29)
  1. ESCITALOPRAM OXALATE [Interacting]
     Active Substance: ESCITALOPRAM OXALATE
     Indication: Anxiety
     Dosage: 5 MG, QD
     Route: 048
  2. ESCITALOPRAM OXALATE [Interacting]
     Active Substance: ESCITALOPRAM OXALATE
     Indication: Depression
     Dosage: 7.5 MG, QD
     Route: 048
  3. ESCITALOPRAM OXALATE [Interacting]
     Active Substance: ESCITALOPRAM OXALATE
     Indication: Major depression
     Dosage: 10 MG, QD
     Route: 048
  4. ESCITALOPRAM [Interacting]
     Active Substance: ESCITALOPRAM OXALATE
     Indication: Major depression
     Dosage: 10 MG, QD
     Route: 048
  5. ESCITALOPRAM [Interacting]
     Active Substance: ESCITALOPRAM OXALATE
     Dosage: 7.5 MG, QD
     Route: 048
  6. ESCITALOPRAM OXALATE [Interacting]
     Active Substance: ESCITALOPRAM OXALATE
     Indication: Anxiety
     Dosage: 7.5 MG, QD
     Route: 048
  7. ESCITALOPRAM OXALATE [Interacting]
     Active Substance: ESCITALOPRAM OXALATE
     Indication: Major depression
  8. SUMATRIPTAN [Interacting]
     Active Substance: SUMATRIPTAN
     Indication: Migraine prophylaxis
     Dosage: 100 MG
     Route: 048
  9. SUMATRIPTAN [Interacting]
     Active Substance: SUMATRIPTAN
     Indication: Migraine
     Dosage: 100 MG, QD
     Route: 048
  10. SUMATRIPTAN [Interacting]
     Active Substance: SUMATRIPTAN
     Dosage: UNK
  11. PAROXETINE [Interacting]
     Active Substance: PAROXETINE
     Indication: Mood swings
     Dosage: 10 MG, QD
     Route: 048
  12. DULOXETINE [Interacting]
     Active Substance: DULOXETINE
     Indication: Migraine prophylaxis
     Dosage: 30 MG, QD
     Route: 048
  13. DULOXETINE [Interacting]
     Active Substance: DULOXETINE
     Indication: Migraine
     Dosage: UNK
  14. LORATADINE\PSEUDOEPHEDRINE SULFATE [Suspect]
     Active Substance: LORATADINE\PSEUDOEPHEDRINE SULFATE
     Indication: Rhinitis allergic
     Dosage: UNK
     Route: 048
  15. LORATADINE\PSEUDOEPHEDRINE SULFATE [Suspect]
     Active Substance: LORATADINE\PSEUDOEPHEDRINE SULFATE
     Dosage: 1 DF, QD
  16. ERGOCALCIFEROL [Concomitant]
     Active Substance: ERGOCALCIFEROL
     Indication: Nutritional supplementation
     Dosage: 2000 IU, QD
     Route: 048
  17. ETHINYL ESTRADIOL\LEVONORGESTREL [Concomitant]
     Active Substance: ETHINYL ESTRADIOL\LEVONORGESTREL
     Indication: Hormonal contraception
     Dosage: 1 DF, QD
     Route: 048
  18. KETOROLAC [Concomitant]
     Active Substance: KETOROLAC TROMETHAMINE
     Indication: Migraine
     Dosage: 10 MG
     Route: 048
  19. KETOROLAC [Concomitant]
     Active Substance: KETOROLAC TROMETHAMINE
     Dosage: 10 MG, QD
     Route: 048
  20. PROMETHAZINE [Concomitant]
     Active Substance: PROMETHAZINE HYDROCHLORIDE
     Indication: Migraine
     Dosage: 25 MG
     Route: 048
  21. PROMETHAZINE [Concomitant]
     Active Substance: PROMETHAZINE HYDROCHLORIDE
     Dosage: 25 MG, QD
     Route: 048
  22. VITAMIN C [Concomitant]
     Active Substance: ASCORBIC ACID
     Indication: Nutritional supplementation
     Dosage: 125 MG, Q12H
     Route: 048
  23. VITAMIN C [Concomitant]
     Active Substance: ASCORBIC ACID
     Dosage: 125 MG, BID
     Route: 048
  24. ZOLPIDEM [Concomitant]
     Active Substance: ZOLPIDEM TARTRATE
     Indication: Insomnia
     Dosage: 5 MG
     Route: 048
  25. VITAMIN D [Concomitant]
     Active Substance: VITAMIN D NOS
     Indication: Nutritional supplementation
     Dosage: 2000 IU, QD
     Route: 048
  26. BUSPIRONE [Concomitant]
     Active Substance: BUSPIRONE HYDROCHLORIDE
     Indication: Generalised anxiety disorder
     Dosage: UNK
  27. PREGABALIN [Concomitant]
     Active Substance: PREGABALIN
     Indication: Generalised anxiety disorder
     Dosage: UNK
  28. VENLAFAXINE [Concomitant]
     Active Substance: VENLAFAXINE HYDROCHLORIDE
     Indication: Generalised anxiety disorder
     Dosage: UNK
  29. VENLAFAXINE [Concomitant]
     Active Substance: VENLAFAXINE HYDROCHLORIDE
     Indication: Major depression

REACTIONS (14)
  - Condition aggravated [Unknown]
  - Depressed mood [Unknown]
  - Depressive symptom [Unknown]
  - Drug interaction [Unknown]
  - Drug-disease interaction [Unknown]
  - Dyspepsia [Unknown]
  - Serotonin syndrome [Unknown]
  - Hot flush [Unknown]
  - Agitation [Unknown]
  - Anxiety [Unknown]
  - Headache [Unknown]
  - Insomnia [Unknown]
  - Drug ineffective [Unknown]
  - Depression [Unknown]
